FAERS Safety Report 6939299-6 (Version None)
Quarter: 2010Q3

REPORT INFORMATION
  Report Type: 
  Country: None (occurrence: None)
  Receive Date: 20100824
  Receipt Date: 20100817
  Transmission Date: 20110219
  Serious: Yes (Other)
  Sender: FDA-Public Use
  Company Number: AU-WYE-G06549510

PATIENT
  Age: 21 Year
  Sex: Female

DRUGS (2)
  1. PRISTIQ [Suspect]
     Dosage: 100MG DAILY
     Dates: start: 20100201
  2. RABEPRAZOLE SODIUM [Concomitant]

REACTIONS (1)
  - MYOCLONUS [None]
